FAERS Safety Report 4833000-8 (Version None)
Quarter: 2005Q4

REPORT INFORMATION
  Report Type: 
  Country: None (occurrence: None)
  Receive Date: 20051121
  Receipt Date: 20050831
  Transmission Date: 20060501
  Serious: Yes (Hospitalization, Other)
  Sender: FDA-Public Use
  Company Number: PHEH2005US09726

PATIENT
  Age: 63 Year
  Sex: Female

DRUGS (6)
  1. ZOMETA [Suspect]
     Indication: MULTIPLE MYELOMA
     Dosage: MONTHLY
     Route: 042
     Dates: start: 20040312, end: 20050811
  2. THALIDOMIDE [Concomitant]
     Dosage: 100 MG, QD
     Dates: start: 20040301
  3. ZOLOFT [Concomitant]
  4. MULTI-VITAMINS [Concomitant]
  5. IMFED [Concomitant]
     Indication: IRON DEFICIENCY
     Dosage: 500 MG, UNK
     Dates: start: 20040129
  6. ARANESP [Concomitant]
     Dosage: 200 MG, UNK
     Dates: start: 20020414, end: 20050629

REACTIONS (15)
  - BONE DISORDER [None]
  - BONE MARROW OEDEMA [None]
  - DENTAL OPERATION [None]
  - EAR PAIN [None]
  - GINGIVAL SWELLING [None]
  - GINGIVITIS [None]
  - IMPAIRED HEALING [None]
  - LOBAR PNEUMONIA [None]
  - ORAL SOFT TISSUE DISORDER [None]
  - OSTEOMYELITIS [None]
  - OSTEONECROSIS [None]
  - PAIN [None]
  - PAIN IN JAW [None]
  - SINUS HEADACHE [None]
  - TOOTH EXTRACTION [None]
